FAERS Safety Report 7358540-1 (Version None)
Quarter: 2011Q1

REPORT INFORMATION
  Report Type: 
  Country: None (occurrence: None)
  Receive Date: 20110317
  Receipt Date: 20110303
  Transmission Date: 20110831
  Serious: Yes (Hospitalization)
  Sender: FDA-Public Use
  Company Number: US-ALEXION-A201100158

PATIENT
  Sex: Male

DRUGS (2)
  1. SOLIRIS [Suspect]
     Dosage: 900 MG, Q2W
     Route: 042
     Dates: start: 20080601, end: 20110129
  2. SOLIRIS [Suspect]
     Indication: PAROXYSMAL NOCTURNAL HAEMOGLOBINURIA
     Dosage: 600 MG, QW
     Route: 042
     Dates: start: 20080509, end: 20080501

REACTIONS (4)
  - PANCYTOPENIA [None]
  - GINGIVITIS [None]
  - PSEUDOMONAL SEPSIS [None]
  - APLASTIC ANAEMIA [None]
